FAERS Safety Report 24747775 (Version 1)
Quarter: 2024Q4

REPORT INFORMATION
  Report Type: Spontaneous
  Country: FR (occurrence: FR)
  Receive Date: 20241218
  Receipt Date: 20241218
  Transmission Date: 20250114
  Serious: Yes (Hospitalization)
  Sender: CHEPLAPHARM
  Company Number: None

PATIENT
  Age: 82 Year
  Sex: Female
  Weight: 53 kg

DRUGS (13)
  1. HYDROXYUREA [Suspect]
     Active Substance: HYDROXYUREA
     Indication: Essential thrombocythaemia
     Dosage: 0-0-1?DAILY DOSE: 500 MILLIGRAM
     Route: 048
     Dates: start: 20240913, end: 20241002
  2. OMNIPAQUE [Suspect]
     Active Substance: IOHEXOL
     Indication: Scan with contrast
     Route: 042
     Dates: start: 20240920, end: 20240920
  3. FUROSEMIDE [Suspect]
     Active Substance: FUROSEMIDE
     Indication: Cardiac failure
     Dosage: 0-1-0
     Route: 048
  4. ANAGRELIDE HYDROCHLORIDE [Suspect]
     Active Substance: ANAGRELIDE HYDROCHLORIDE
     Indication: Essential thrombocythaemia
     Dosage: 2-0-2
     Route: 048
     Dates: start: 20240913, end: 20241002
  5. Previscan [Concomitant]
     Dosage: 0-0-0-1/4
     Route: 048
  6. KARDEGIC [Concomitant]
     Active Substance: ASPIRIN DL-LYSINE
     Dosage: 0-1-0
     Route: 048
  7. AMIODARONE HYDROCHLORIDE [Concomitant]
     Active Substance: AMIODARONE HYDROCHLORIDE
     Dosage: 1-0-0
     Route: 048
  8. BISOPROLOL FUMARATE [Concomitant]
     Active Substance: BISOPROLOL FUMARATE
     Dosage: 0-1-0
     Route: 048
  9. CEFTRIAXONE [Concomitant]
     Active Substance: CEFTRIAXONE
     Dosage: DAILY DOSE: 1 GRAM
     Route: 042
  10. LEVOTHYROXINE [Concomitant]
     Active Substance: LEVOTHYROXINE
     Dosage: 1-0-0
     Route: 048
  11. NICARDIPINE HYDROCHLORIDE [Concomitant]
     Active Substance: NICARDIPINE HYDROCHLORIDE
     Dosage: 1-0-1
     Route: 048
  12. Urapidil Viatris [Concomitant]
     Dosage: 1-0-1
     Route: 048
  13. Zopiclone arrow lab [Concomitant]
     Dosage: 0-0-0-1
     Route: 048

REACTIONS (2)
  - Acute kidney injury [Recovering/Resolving]
  - Cardiac failure [Recovering/Resolving]

NARRATIVE: CASE EVENT DATE: 20240901
